FAERS Safety Report 22692226 (Version 4)
Quarter: 2025Q1

REPORT INFORMATION
  Report Type: Spontaneous
  Country: US (occurrence: US)
  Receive Date: 20230711
  Receipt Date: 20250220
  Transmission Date: 20250409
  Serious: Yes (Hospitalization, Other)
  Sender: PFIZER
  Company Number: US-PFIZER INC-202300241698

PATIENT
  Age: 43 Year
  Sex: Male
  Weight: 79.3 kg

DRUGS (1)
  1. OXBRYTA [Suspect]
     Active Substance: VOXELOTOR
     Indication: Sickle cell disease
     Dosage: 3 TABLETS
     Dates: start: 20200306

REACTIONS (9)
  - Full blood count decreased [Unknown]
  - Dehydration [Unknown]
  - Sickle cell anaemia with crisis [Unknown]
  - Numb chin syndrome [Not Recovered/Not Resolved]
  - Hypersensitivity [Unknown]
  - Swelling face [Unknown]
  - Pain [Unknown]
  - Emotional distress [Unknown]
  - Musculoskeletal pain [Unknown]

NARRATIVE: CASE EVENT DATE: 20230501
